FAERS Safety Report 15865599 (Version 3)
Quarter: 2019Q2

REPORT INFORMATION
  Report Type: Spontaneous
  Country: RO (occurrence: RO)
  Receive Date: 20190125
  Receipt Date: 20190404
  Transmission Date: 20190711
  Serious: Yes (Death, Hospitalization, Other)
  Sender: FDA-Public Use
  Company Number: RO-AMGEN-ROUSP2019011655

PATIENT
  Age: 37 Year
  Sex: Male

DRUGS (3)
  1. ENBREL [Suspect]
     Active Substance: ETANERCEPT
     Indication: ANKYLOSING SPONDYLITIS
     Dosage: 25 MG, 2X/WEEK
     Route: 065
     Dates: start: 201404, end: 201506
  2. ENBREL [Suspect]
     Active Substance: ETANERCEPT
     Dosage: UNK
     Route: 065
     Dates: start: 201601, end: 20170220
  3. ENBREL [Suspect]
     Active Substance: ETANERCEPT
     Dosage: UNK
     Route: 065
     Dates: start: 201811

REACTIONS (8)
  - Road traffic accident [Unknown]
  - Inflammation [Unknown]
  - Rhinitis [Unknown]
  - Death [Fatal]
  - Clavicle fracture [Unknown]
  - Upper respiratory tract infection [Unknown]
  - Treatment noncompliance [Unknown]
  - Bronchitis [Unknown]

NARRATIVE: CASE EVENT DATE: 20161005
